FAERS Safety Report 12528791 (Version 1)
Quarter: 2016Q3

REPORT INFORMATION
  Report Type: Spontaneous
  Country: US (occurrence: US)
  Receive Date: 20160705
  Receipt Date: 20160705
  Transmission Date: 20161109
  Serious: Yes (Other)
  Sender: FDA-Public Use
  Company Number: US-PFIZER INC-2016228588

PATIENT
  Age: 59 Year
  Sex: Female

DRUGS (1)
  1. AROMASIN [Suspect]
     Active Substance: EXEMESTANE
     Indication: NEOPLASM MALIGNANT
     Dosage: 25 MG, DAILY (1 TABLET)
     Route: 048
     Dates: start: 20160420, end: 20160520

REACTIONS (2)
  - Neoplasm malignant [Unknown]
  - Amnesia [Unknown]
